FAERS Safety Report 13787434 (Version 2)
Quarter: 2019Q4

REPORT INFORMATION
  Report Type: Spontaneous
  Country: US (occurrence: US)
  Receive Date: 20170725
  Receipt Date: 20191023
  Transmission Date: 20200122
  Serious: No
  Sender: FDA-Public Use
  Company Number: US-JNJFOC-20170621316

PATIENT
  Sex: Male

DRUGS (1)
  1. PARACETAMOL [Suspect]
     Active Substance: ACETAMINOPHEN
     Indication: MUSCULOSKELETAL PAIN
     Dosage: 24 CAPLETS
     Route: 054

REACTIONS (4)
  - Drug ineffective [Unknown]
  - Headache [Unknown]
  - Dizziness [Unknown]
  - Incorrect route of product administration [Unknown]
